FAERS Safety Report 6285957-9 (Version None)
Quarter: 2009Q3

REPORT INFORMATION
  Report Type: 
  Country: None (occurrence: None)
  Receive Date: 20090728
  Receipt Date: 20090723
  Transmission Date: 20100115
  Serious: Yes (Life-Threatening, Hospitalization)
  Sender: FDA-Public Use
  Company Number: GB-JNJFOC-20090101130

PATIENT
  Sex: Female
  Weight: 76 kg

DRUGS (9)
  1. DURAGESIC-100 [Suspect]
     Indication: PROCEDURAL PAIN
     Route: 062
  2. FENTANYL CITRATE [Suspect]
     Indication: PROCEDURAL PAIN
     Route: 008
  3. DIAMORPHINE [Suspect]
     Indication: PROCEDURAL PAIN
     Route: 008
  4. BUPIVACAINE [Suspect]
     Indication: PROCEDURAL PAIN
     Route: 008
  5. ZOPICLONE [Suspect]
     Indication: SLEEP DISORDER
     Route: 048
  6. CHLORPHENIRAMINE MALEATE [Suspect]
     Indication: PRURITUS
     Route: 030
  7. FLUOXETINE [Suspect]
     Indication: DEPRESSION
     Route: 048
  8. LANSOPRAZOLE [Concomitant]
     Indication: HIATUS HERNIA
     Route: 048
  9. TIBOLONE [Concomitant]
     Indication: HORMONE REPLACEMENT THERAPY
     Route: 048

REACTIONS (15)
  - ABDOMINAL PAIN [None]
  - ASPIRATION [None]
  - BODY TEMPERATURE INCREASED [None]
  - DISORIENTATION [None]
  - HALLUCINATION, VISUAL [None]
  - LOSS OF CONSCIOUSNESS [None]
  - NIGHT SWEATS [None]
  - OFF LABEL USE [None]
  - OVERDOSE [None]
  - PAIN [None]
  - PNEUMONITIS [None]
  - PULMONARY OEDEMA [None]
  - SEDATION [None]
  - VOMITING [None]
  - WHITE BLOOD CELL COUNT INCREASED [None]
